FAERS Safety Report 22590941 (Version 1)
Quarter: 2023Q2

REPORT INFORMATION
  Report Type: Spontaneous
  Country: US (occurrence: None)
  Receive Date: 20230612
  Receipt Date: 20230612
  Transmission Date: 20230721
  Serious: Yes (Other)
  Sender: FDA-Public Use
  Company Number: 2023A132951

PATIENT
  Sex: Female

DRUGS (27)
  1. BUDESONIDE [Suspect]
     Active Substance: BUDESONIDE
     Route: 055
  2. PRILOSEC [Suspect]
     Active Substance: OMEPRAZOLE MAGNESIUM
     Route: 048
  3. DALIRESP [Suspect]
     Active Substance: ROFLUMILAST
     Route: 048
  4. XOLAIR [Concomitant]
     Active Substance: OMALIZUMAB
  5. MATZIM LA [Concomitant]
     Active Substance: DILTIAZEM HYDROCHLORIDE
  6. CLONIDINE [Concomitant]
     Active Substance: CLONIDINE
  7. SOMA [Concomitant]
     Active Substance: CARISOPRODOL
  8. EDECRINE [Concomitant]
  9. KLOR-CON M10 [Concomitant]
     Active Substance: POTASSIUM CHLORIDE
  10. SINGULAIR [Concomitant]
     Active Substance: MONTELUKAST SODIUM
  11. SPIRIVA [Concomitant]
     Active Substance: TIOTROPIUM BROMIDE MONOHYDRATE
  12. XYZAL [Concomitant]
     Active Substance: LEVOCETIRIZINE DIHYDROCHLORIDE
  13. VALSARTAN [Concomitant]
     Active Substance: VALSARTAN
  14. PLAVIX [Concomitant]
     Active Substance: CLOPIDOGREL BISULFATE
  15. REPATHA [Concomitant]
     Active Substance: EVOLOCUMAB
  16. ACETYLCYSTEINE [Concomitant]
     Active Substance: ACETYLCYSTEINE
  17. FORMOTEROL [Concomitant]
     Active Substance: FORMOTEROL
  18. XOPENEX [Concomitant]
     Active Substance: LEVALBUTEROL HYDROCHLORIDE
  19. XOPENEX HFA [Concomitant]
     Active Substance: LEVALBUTEROL TARTRATE
  20. CALCIUM [Concomitant]
     Active Substance: CALCIUM
  21. VITAMIN D3 [Concomitant]
     Active Substance: CHOLECALCIFEROL
  22. BENADRYL [Concomitant]
     Active Substance: DIPHENHYDRAMINE HYDROCHLORIDE
  23. EPIPEN [Concomitant]
     Active Substance: EPINEPHRINE
  24. ZOFRAN [Concomitant]
     Active Substance: ONDANSETRON HYDROCHLORIDE
  25. KETOROLAC [Concomitant]
     Active Substance: KETOROLAC TROMETHAMINE
  26. GLUCAGON [Concomitant]
     Active Substance: GLUCAGON
  27. LIQUID OXYGEN [Concomitant]
     Active Substance: OXYGEN

REACTIONS (6)
  - Anaphylactic reaction [Unknown]
  - Fear [Unknown]
  - Peripheral swelling [Unknown]
  - Rash [Unknown]
  - Erythema [Unknown]
  - Dizziness [Unknown]
